FAERS Safety Report 23694315 (Version 1)
Quarter: 2024Q2

REPORT INFORMATION
  Report Type: Spontaneous
  Country: DE (occurrence: DE)
  Receive Date: 20240401
  Receipt Date: 20240401
  Transmission Date: 20240715
  Serious: Yes (Other)
  Sender: FDA-Public Use
  Company Number: DE-SANDOZ-SDZ2024DE033697

PATIENT
  Age: 78 Year
  Sex: Female

DRUGS (1)
  1. OLANZAPINE [Suspect]
     Active Substance: OLANZAPINE
     Indication: Depression
     Dosage: 5 MG, QD
     Route: 065
     Dates: start: 202201

REACTIONS (4)
  - Carcinoembryonic antigen increased [Unknown]
  - Hepatitis [Unknown]
  - Carbohydrate antigen 19-9 increased [Unknown]
  - Liver function test increased [Unknown]

NARRATIVE: CASE EVENT DATE: 20220201
